FAERS Safety Report 9030333 (Version 2)
Quarter: 2013Q1

REPORT INFORMATION
  Report Type: Spontaneous
  Country: US (occurrence: US)
  Receive Date: 20130122
  Receipt Date: 20130227
  Transmission Date: 20140127
  Serious: Yes (Hospitalization, Other)
  Sender: FDA-Public Use
  Company Number: US-PFIZER INC-2013022731

PATIENT
  Age: 34 Year
  Sex: Female
  Weight: 61.22 kg

DRUGS (11)
  1. NORVASC [Suspect]
     Indication: HYPERTENSION
     Dosage: 5 MG, 1X/DAY
     Route: 048
  2. NEURONTIN [Suspect]
     Indication: NERVE INJURY
     Dosage: 300 MG, 3X/DAY
     Route: 048
  3. PROZAC [Concomitant]
     Dosage: 20 MG, 1X/DAY
  4. ACARBOSE [Concomitant]
     Indication: HYPERGLYCAEMIA
     Dosage: 25 MG, UNK
  5. ADDERALL [Concomitant]
     Dosage: UNK
  6. NEXIUM [Concomitant]
     Dosage: 40 MG, UNK
  7. AMITIZA [Concomitant]
     Dosage: 24 UG, 2X/DAY
  8. FLEXERIL [Concomitant]
     Dosage: 10 MG, 3X/DAY
  9. ULTRAM [Concomitant]
     Dosage: 50 MG, UNK
  10. PROMETHAZINE [Concomitant]
     Dosage: UNK
  11. KLONOPIN [Concomitant]
     Dosage: UNK

REACTIONS (12)
  - Gastrointestinal perforation [Unknown]
  - Sepsis [Unknown]
  - Tuberculosis [Unknown]
  - Appendicitis perforated [Unknown]
  - Pneumonia [Unknown]
  - Nephrolithiasis [Unknown]
  - Pancreatitis [Unknown]
  - Immune system disorder [Unknown]
  - Depression [Unknown]
  - Anxiety [Unknown]
  - Gastrointestinal disorder [Unknown]
  - Dysuria [Unknown]
